FAERS Safety Report 21617800 (Version 3)
Quarter: 2023Q1

REPORT INFORMATION
  Report Type: Report from Study
  Country: BR (occurrence: BR)
  Receive Date: 20221119
  Receipt Date: 20230320
  Transmission Date: 20230417
  Serious: Yes (Other)
  Sender: FDA-Public Use
  Company Number: BR-CELLTRION INC.-2022BR019319

PATIENT

DRUGS (1)
  1. INFLIXIMAB [Suspect]
     Active Substance: INFLIXIMAB
     Indication: Ankylosing spondylitis
     Dosage: 4 AMPOULES EVERY 60 DAYS FOR APPROXIMATELY 6 MONTHS
     Route: 042

REACTIONS (7)
  - Lower limb fracture [Unknown]
  - Femur fracture [Unknown]
  - Neck pain [Unknown]
  - Spinal pain [Unknown]
  - Arthralgia [Unknown]
  - Intentional dose omission [Unknown]
  - Off label use [Unknown]
